FAERS Safety Report 21449367 (Version 11)
Quarter: 2025Q4

REPORT INFORMATION
  Report Type: Report from Study
  Country: US (occurrence: US)
  Receive Date: 20221013
  Receipt Date: 20251219
  Transmission Date: 20260117
  Serious: Yes (Hospitalization, Other)
  Sender: INSMED
  Company Number: US-INSMED, INC.-2022-02777-US

PATIENT
  Sex: Female

DRUGS (2)
  1. ARIKAYCE [Suspect]
     Active Substance: AMIKACIN
     Indication: Mycobacterial infection
     Dosage: 590 MILLIGRAM, QD
     Route: 055
     Dates: start: 20221003, end: 20221005
  2. BRINSUPRI [Suspect]
     Active Substance: BRENSOCATIB
     Indication: Bronchiectasis
     Dosage: 25 MILLIGRAM, QD
     Route: 048
     Dates: start: 20251211

REACTIONS (12)
  - Tachypnoea [Recovering/Resolving]
  - Bladder catheterisation [Not Recovered/Not Resolved]
  - Impaired gastric emptying [Unknown]
  - Respiratory distress [Not Recovered/Not Resolved]
  - Dyspnoea [Recovering/Resolving]
  - Weight decreased [Unknown]
  - Secretion discharge [Recovering/Resolving]
  - Hypersomnia [Unknown]
  - Abdominal pain upper [Recovering/Resolving]
  - Hypertension [Not Recovered/Not Resolved]
  - Cough [Recovering/Resolving]
  - Illness [Unknown]

NARRATIVE: CASE EVENT DATE: 20220101
